FAERS Safety Report 7637131-9 (Version None)
Quarter: 2011Q3

REPORT INFORMATION
  Report Type: 
  Country: None (occurrence: None)
  Receive Date: 20110722
  Receipt Date: 20110722
  Transmission Date: 20111222
  Serious: No
  Sender: FDA-Public Use
  Company Number: None

PATIENT
  Age: 72 Year
  Sex: Male
  Weight: 74.8435 kg

DRUGS (1)
  1. LIVALO [Suspect]
     Indication: BLOOD CHOLESTEROL INCREASED
     Dosage: 2MG  1X DAILY ORAL
     Route: 048
     Dates: start: 20110626, end: 20110630

REACTIONS (8)
  - PYREXIA [None]
  - VOMITING [None]
  - JOINT SWELLING [None]
  - MUSCLE SPASMS [None]
  - CHILLS [None]
  - TREMOR [None]
  - PRURITUS [None]
  - GAIT DISTURBANCE [None]
